FAERS Safety Report 9193110 (Version 3)
Quarter: 2013Q2

REPORT INFORMATION
  Report Type: Spontaneous
  Country: US (occurrence: US)
  Receive Date: 20130327
  Receipt Date: 20130426
  Transmission Date: 20140414
  Serious: Yes (Other)
  Sender: FDA-Public Use
  Company Number: US-PURDUE-USA-2013-0100117

PATIENT
  Age: 56 Year
  Sex: Male
  Weight: 103.86 kg

DRUGS (8)
  1. BUTRANS [Suspect]
     Indication: PAIN
     Dosage: 20 MCG/HR, WEEKLY
     Route: 062
     Dates: start: 20121214, end: 20130321
  2. PERCOCET                           /00867901/ [Concomitant]
     Indication: BREAKTHROUGH PAIN
     Dosage: 1-2 TABS, 5/325 MG EVERY 4 HOURS
     Route: 048
  3. PERCOCET                           /00867901/ [Concomitant]
     Dosage: 10/325 MG , 1 TAB AS NEEDED
  4. VALIUM                             /00017001/ [Concomitant]
     Indication: INSOMNIA
     Dosage: 1 TABLET, PRN
     Route: 048
  5. XANAX [Concomitant]
     Indication: ANXIETY
     Dosage: 1 TABLET, PRN
     Route: 048
  6. XANAX [Concomitant]
     Dosage: 2 MG, BID
     Route: 048
     Dates: start: 20120207
  7. ADIPEX                             /00131701/ [Concomitant]
     Indication: OBESITY
     Dosage: 375 MG, QD PRN
     Route: 048
     Dates: start: 20120305, end: 20130207
  8. TESTOSTERONE [Concomitant]
     Indication: ANDROGEN DEFICIENCY
     Dosage: 100 MG, Q 2 WEEKS

REACTIONS (17)
  - Choking [Recovered/Resolved]
  - Application site burn [Recovered/Resolved]
  - Dyspnoea [Recovered/Resolved]
  - Application site erosion [Recovered/Resolved]
  - Device leakage [Unknown]
  - Bedridden [Not Recovered/Not Resolved]
  - Application site scar [Unknown]
  - Tremor [Not Recovered/Not Resolved]
  - Weight decreased [Unknown]
  - Application site discharge [Recovered/Resolved]
  - Application site erythema [Recovered/Resolved]
  - Application site rash [Recovered/Resolved]
  - Pain [Not Recovered/Not Resolved]
  - Drug ineffective [Not Recovered/Not Resolved]
  - Application site vesicles [Recovered/Resolved]
  - Drug withdrawal syndrome [Not Recovered/Not Resolved]
  - Decreased appetite [Not Recovered/Not Resolved]
